FAERS Safety Report 13417628 (Version 5)
Quarter: 2018Q3

REPORT INFORMATION
  Report Type: Report from Study
  Country: AU (occurrence: AU)
  Receive Date: 20170407
  Receipt Date: 20180829
  Transmission Date: 20181010
  Serious: Yes (Hospitalization)
  Sender: FDA-Public Use
  Company Number: AU-BIOGEN-2017BI00370989

PATIENT
  Age: 57 Year
  Sex: Female
  Weight: 67.7 kg

DRUGS (1)
  1. BG00012 [Suspect]
     Active Substance: DIMETHYL FUMARATE
     Indication: RELAPSING-REMITTING MULTIPLE SCLEROSIS
     Route: 048
     Dates: start: 2009, end: 20161206

REACTIONS (1)
  - Squamous endometrial carcinoma [Not Recovered/Not Resolved]

NARRATIVE: CASE EVENT DATE: 20170308
